FAERS Safety Report 25125471 (Version 3)
Quarter: 2025Q2

REPORT INFORMATION
  Report Type: Report from Study
  Country: US (occurrence: US)
  Receive Date: 20250326
  Receipt Date: 20250411
  Transmission Date: 20250717
  Serious: Yes (Hospitalization)
  Sender: EISAI
  Company Number: US-Eisai-EC-2025-186306

PATIENT
  Age: 68 Year
  Sex: Female
  Weight: 85.72 kg

DRUGS (2)
  1. LENVIMA [Suspect]
     Active Substance: LENVATINIB
     Indication: Salivary gland cancer
     Dates: start: 20241101, end: 20250108
  2. LENVIMA [Suspect]
     Active Substance: LENVATINIB
     Dates: start: 20250325

REACTIONS (9)
  - Dehydration [Not Recovered/Not Resolved]
  - Decreased appetite [Not Recovered/Not Resolved]
  - Arrhythmia [Not Recovered/Not Resolved]
  - Hypertension [Not Recovered/Not Resolved]
  - Kidney infection [Not Recovered/Not Resolved]
  - Staphylococcal skin infection [Recovered/Resolved]
  - Urinary tract infection [Recovered/Resolved]
  - Nausea [Unknown]
  - Myalgia [Unknown]

NARRATIVE: CASE EVENT DATE: 20250101
